FAERS Safety Report 6271621-9 (Version None)
Quarter: 2009Q3

REPORT INFORMATION
  Report Type: 
  Country: None (occurrence: None)
  Receive Date: 20090717
  Receipt Date: 20090422
  Transmission Date: 20100115
  Serious: No
  Sender: FDA-Public Use
  Company Number: US-BAYER-200918969NA

PATIENT
  Age: 23 Year
  Sex: Female
  Weight: 50 kg

DRUGS (4)
  1. YAZ [Suspect]
     Indication: ACNE
     Dosage: TOTAL DAILY DOSE: 1 DF
     Route: 048
  2. VITAMINS [Concomitant]
  3. FISH OIL [Concomitant]
  4. VITAMIN B COMPLEX CAP [Concomitant]

REACTIONS (3)
  - ABDOMINAL DISTENSION [None]
  - ACNE [None]
  - BRONCHITIS [None]
